FAERS Safety Report 15346898 (Version 3)
Quarter: 2018Q4

REPORT INFORMATION
  Report Type: Spontaneous
  Country: MX (occurrence: MX)
  Receive Date: 20180904
  Receipt Date: 20181004
  Transmission Date: 20190204
  Serious: Yes (Other)
  Sender: FDA-Public Use
  Company Number: PHHY2018MX078348

PATIENT
  Age: 45 Year
  Sex: Female
  Weight: 49 kg

DRUGS (7)
  1. MYFORTIC [Suspect]
     Active Substance: MYCOPHENOLATE SODIUM
     Dosage: 720 MG, Q12H (EVERY 12 HOURS)
     Route: 065
  2. MYFORTIC [Suspect]
     Active Substance: MYCOPHENOLATE SODIUM
     Dosage: 360 MG, QID(2 OF 360 MG IN THE MORNING (720 MG) AND 1 OF 360 MG + 1 OF 180 MG AT NIGHT (540 MG) )
     Route: 065
  3. PROGRAF [Concomitant]
     Active Substance: TACROLIMUS\TACROLIMUS ANHYDROUS
     Indication: PRODUCT USED FOR UNKNOWN INDICATION
     Route: 065
  4. MYFORTIC [Suspect]
     Active Substance: MYCOPHENOLATE SODIUM
     Indication: RENAL TRANSPLANT
     Dosage: 360 MG, TID (2 IN THE MORN ING (720 MG) AND 1 AT NIGHT )
     Route: 065
  5. MYFORTIC [Suspect]
     Active Substance: MYCOPHENOLATE SODIUM
     Dosage: 360 MG, QID(2 IN THE MORN ING (720 MG) AND 2 AT NIGHT (720 MG)
     Route: 065
  6. MYFORTIC [Suspect]
     Active Substance: MYCOPHENOLATE SODIUM
     Dosage: 360 MG, QID(2 OF 360 MG IN THE MORN ING (720 MG) AND 1 OF 360 MG + 1 OF 180 MG AT NIGHT (540 MG) )
     Route: 065
  7. METICORTEN [Concomitant]
     Active Substance: PREDNISONE
     Indication: PRODUCT USED FOR UNKNOWN INDICATION
     Route: 065

REACTIONS (7)
  - Kidney transplant rejection [Unknown]
  - Immunosuppressant drug level decreased [Unknown]
  - Diarrhoea [Unknown]
  - Drug ineffective [Unknown]
  - Drug intolerance [Unknown]
  - Blood creatinine increased [Unknown]
  - Renal tubular necrosis [Unknown]
